FAERS Safety Report 24794839 (Version 1)
Quarter: 2024Q4

REPORT INFORMATION
  Report Type: Spontaneous
  Country: US (occurrence: US)
  Receive Date: 20241231
  Receipt Date: 20241231
  Transmission Date: 20250115
  Serious: Yes (Other)
  Sender: COOPERSURGICAL
  Company Number: US-COOPERSURGICAL, INC.-2024CPS004133

PATIENT
  Age: 37 Year
  Sex: Female
  Weight: 78.005 kg

DRUGS (2)
  1. PARAGARD T 380A [Suspect]
     Active Substance: COPPER
     Dosage: UNK
     Route: 015
     Dates: start: 20131219
  2. IRON [Concomitant]
     Active Substance: IRON
     Dosage: UNK
     Dates: start: 20190101, end: 20190401

REACTIONS (16)
  - Hysterectomy [Recovered/Resolved]
  - Reproductive complication associated with device [Not Recovered/Not Resolved]
  - Uterine leiomyoma [Unknown]
  - Device breakage [Recovered/Resolved]
  - Foreign body in reproductive tract [Recovered/Resolved]
  - Complication of device removal [Recovered/Resolved]
  - Embedded device [Recovered/Resolved]
  - Streptococcal infection [Unknown]
  - Tonsillar ulcer [Unknown]
  - Pharyngitis [Unknown]
  - Arthralgia [Unknown]
  - Vitamin D deficiency [Unknown]
  - Emotional disorder [Unknown]
  - Abdominal pain [Recovered/Resolved]
  - Pelvic pain [Recovered/Resolved]
  - Device expulsion [Recovered/Resolved]

NARRATIVE: CASE EVENT DATE: 20140610
